FAERS Safety Report 5030320-1 (Version None)
Quarter: 2006Q2

REPORT INFORMATION
  Report Type: 
  Country: None (occurrence: None)
  Receive Date: 20060614
  Receipt Date: 20060601
  Transmission Date: 20061013
  Serious: Yes (Life-Threatening, Hospitalization, Other)
  Sender: FDA-Public Use
  Company Number: 2006070928

PATIENT
  Age: 62 Year
  Sex: Male
  Weight: 90.7194 kg

DRUGS (4)
  1. CAVERJECT [Suspect]
     Indication: ERECTILE DYSFUNCTION
     Dosage: 20 MCG (20 MCG, AS NECESSARY)
     Dates: start: 20040101
  2. ZOVIRAX [Concomitant]
  3. COZAAR [Concomitant]
  4. ASCORBIC ACID [Concomitant]

REACTIONS (7)
  - CONTUSION [None]
  - DEVICE MALFUNCTION [None]
  - DRUG ADMINISTRATION ERROR [None]
  - DRUG EFFECT DECREASED [None]
  - HYPOAESTHESIA [None]
  - LARGE INTESTINE PERFORATION [None]
  - TRANSIENT ISCHAEMIC ATTACK [None]
